FAERS Safety Report 25192318 (Version 1)
Quarter: 2025Q2

REPORT INFORMATION
  Report Type: Spontaneous
  Country: US (occurrence: None)
  Receive Date: 20250411
  Receipt Date: 20250411
  Transmission Date: 20250716
  Serious: Yes (Hospitalization)
  Sender: FDA-CTU
  Company Number: None

PATIENT
  Sex: Female

DRUGS (2)
  1. PULMOZYME [Suspect]
     Active Substance: DORNASE ALFA
     Indication: Respiration abnormal
     Dosage: FREQUENCY : TWICE A DAY;?
     Route: 048
  2. EPIDIOLEX [Suspect]
     Active Substance: CANNABIDIOL

REACTIONS (1)
  - Illness [None]
